FAERS Safety Report 23970540 (Version 5)
Quarter: 2025Q4

REPORT INFORMATION
  Report Type: Report from Study
  Country: CA (occurrence: CA)
  Receive Date: 20240613
  Receipt Date: 20251118
  Transmission Date: 20260119
  Serious: Yes (Hospitalization, Other)
  Sender: TAKEDA
  Company Number: CA-TAKEDA-2024TUS055970

PATIENT
  Age: 54 Year
  Sex: Male

DRUGS (5)
  1. VEDOLIZUMAB [Suspect]
     Active Substance: VEDOLIZUMAB
     Indication: Crohn^s disease
     Dosage: 300 MILLIGRAM
  2. VEDOLIZUMAB [Suspect]
     Active Substance: VEDOLIZUMAB
     Dosage: 300 MILLIGRAM
  3. VEDOLIZUMAB [Suspect]
     Active Substance: VEDOLIZUMAB
     Dosage: 300 MILLIGRAM
  4. PREDNISONE [Concomitant]
     Active Substance: PREDNISONE
     Dosage: UNK
  5. CALCIUM [Concomitant]
     Active Substance: CALCIUM
     Dosage: UNK

REACTIONS (11)
  - Abdominal pain [Unknown]
  - Anal abscess [Unknown]
  - Stress [Unknown]
  - Sticky skin [Unknown]
  - Scrotal discomfort [Unknown]
  - Scab [Unknown]
  - Swelling [Unknown]
  - Skin exfoliation [Unknown]
  - Anxiety [Unknown]
  - Dizziness [Unknown]
  - Erythema [Unknown]

NARRATIVE: CASE EVENT DATE: 20240619
